FAERS Safety Report 7590122-9 (Version None)
Quarter: 2011Q3

REPORT INFORMATION
  Report Type: 
  Country: None (occurrence: None)
  Receive Date: 20110705
  Receipt Date: 20110627
  Transmission Date: 20111222
  Serious: Yes (Other)
  Sender: FDA-Public Use
  Company Number: B0730093A

PATIENT
  Age: 9 Decade
  Sex: Female

DRUGS (2)
  1. VALTREX [Suspect]
     Indication: HERPES ZOSTER
     Route: 048
  2. ZOVIRAX [Suspect]
     Route: 042

REACTIONS (1)
  - ALTERED STATE OF CONSCIOUSNESS [None]
